FAERS Safety Report 25377014 (Version 1)
Quarter: 2025Q2

REPORT INFORMATION
  Report Type: Spontaneous
  Country: DE (occurrence: DE)
  Receive Date: 20250530
  Receipt Date: 20250530
  Transmission Date: 20250716
  Serious: Yes (Death, Life-Threatening, Other)
  Sender: Kenvue
  Company Number: None

PATIENT

DRUGS (11)
  1. IBUPROFEN [Suspect]
     Active Substance: IBUPROFEN
     Indication: Product used for unknown indication
     Route: 048
  2. ASPIRIN [Interacting]
     Active Substance: ASPIRIN
     Indication: Antiplatelet therapy
     Route: 065
  3. ASPIRIN [Interacting]
     Active Substance: ASPIRIN
     Route: 065
  4. EPTIFIBATIDE [Concomitant]
     Active Substance: EPTIFIBATIDE
     Indication: Antiplatelet therapy
     Route: 065
  5. DEXAMETHASONE [Concomitant]
     Active Substance: DEXAMETHASONE
     Indication: Oedema
     Route: 042
  6. DEXAMETHASONE [Concomitant]
     Active Substance: DEXAMETHASONE
     Indication: Steroid therapy
     Route: 042
  7. TICAGRELOR [Concomitant]
     Active Substance: TICAGRELOR
     Indication: Antiplatelet therapy
     Route: 048
  8. TICAGRELOR [Concomitant]
     Active Substance: TICAGRELOR
     Route: 048
  9. DEXAMETHASONE [Concomitant]
     Active Substance: DEXAMETHASONE
     Indication: Oedema
     Route: 042
  10. DEXAMETHASONE [Concomitant]
     Active Substance: DEXAMETHASONE
     Indication: Steroid therapy
     Route: 042
  11. HEPARIN [Concomitant]
     Active Substance: HEPARIN SODIUM
     Indication: Anticoagulant therapy
     Route: 042

REACTIONS (7)
  - Cardio-respiratory arrest [Fatal]
  - Arterial thrombosis [Fatal]
  - Drug interaction [Fatal]
  - Brain herniation [Fatal]
  - Brain oedema [Fatal]
  - Coma [Unknown]
  - Fall [Unknown]
